FAERS Safety Report 9495712 (Version 2)
Quarter: 2013Q3

REPORT INFORMATION
  Report Type: Report from Study
  Country: FR (occurrence: FR)
  Receive Date: 20130903
  Receipt Date: 20130905
  Transmission Date: 20140515
  Serious: Yes (Hospitalization)
  Sender: FDA-Public Use
  Company Number: FR-ROCHE-1267043

PATIENT
  Age: 11 Year
  Sex: Male

DRUGS (16)
  1. BEVACIZUMAB [Suspect]
     Indication: BRAIN NEOPLASM MALIGNANT
     Route: 065
     Dates: start: 20130422
  2. BEVACIZUMAB [Suspect]
     Route: 065
     Dates: start: 20130715
  3. RADIOTHERAPY [Suspect]
     Indication: BRAIN NEOPLASM MALIGNANT
     Dosage: 9 GY
     Route: 065
     Dates: start: 20130422, end: 20130426
  4. RADIOTHERAPY [Suspect]
     Dosage: 7.2 GY
     Route: 065
     Dates: start: 20130429, end: 20130503
  5. RADIOTHERAPY [Suspect]
     Dosage: 5.4 GY
     Route: 065
     Dates: start: 20130506, end: 20130510
  6. RADIOTHERAPY [Suspect]
     Dosage: 7,2 GY
     Route: 065
     Dates: start: 20130513, end: 20130517
  7. RADIOTHERAPY [Suspect]
     Dosage: 7.2 GY
     Route: 065
     Dates: start: 20130521, end: 20130524
  8. RADIOTHERAPY [Suspect]
     Dosage: 9 GY
     Route: 065
     Dates: start: 20130527, end: 20130531
  9. RADIOTHERAPY [Suspect]
     Dosage: 9 GY
     Route: 065
     Dates: start: 20130603, end: 20130607
  10. TEMOZOLOMIDE [Suspect]
     Indication: BRAIN NEOPLASM MALIGNANT
     Route: 065
     Dates: start: 20130703, end: 20130707
  11. TEMOZOLOMIDE [Suspect]
     Route: 065
     Dates: start: 20130730, end: 20130803
  12. DECTANCYL [Concomitant]
     Route: 048
  13. DECTANCYL [Concomitant]
     Route: 048
  14. DECTANCYL [Concomitant]
     Route: 048
  15. BACTRIM [Concomitant]
     Indication: PROPHYLAXIS
  16. ZOPHREN [Concomitant]
     Indication: PROPHYLAXIS

REACTIONS (2)
  - Purpura [Not Recovered/Not Resolved]
  - Pyrexia [Not Recovered/Not Resolved]
